FAERS Safety Report 17640408 (Version 1)
Quarter: 2020Q2

REPORT INFORMATION
  Report Type: Spontaneous
  Country: BR (occurrence: BR)
  Receive Date: 20200407
  Receipt Date: 20200407
  Transmission Date: 20200713
  Serious: Yes (Hospitalization, Other)
  Sender: FDA-Public Use
  Company Number: BR-JNJFOC-20200343502

PATIENT
  Sex: Female

DRUGS (1)
  1. RIVAROXABAN [Suspect]
     Active Substance: RIVAROXABAN
     Indication: HIP SURGERY
     Dosage: UNK
     Route: 048

REACTIONS (6)
  - Off label use [Unknown]
  - Melaena [Unknown]
  - Pyrexia [Unknown]
  - Pneumonia [Unknown]
  - Cerebrovascular accident [Unknown]
  - Anaemia [Unknown]
